FAERS Safety Report 5973612-1 (Version None)
Quarter: 2008Q4

REPORT INFORMATION
  Report Type: 
  Country: None (occurrence: None)
  Receive Date: 20081201
  Receipt Date: 20081124
  Transmission Date: 20090506
  Serious: Yes (Hospitalization, Disabling, Other)
  Sender: FDA-Public Use
  Company Number: CA-ELI_LILLY_AND_COMPANY-CA200810000760

PATIENT
  Sex: Female

DRUGS (8)
  1. FORTEO [Suspect]
     Indication: OSTEOPOROSIS
     Dosage: 20 UG, DAILY (1/D)
     Route: 058
     Dates: start: 20070917
  2. AVALIDE [Concomitant]
     Dosage: 12.5 MG, UNK
  3. NORVASC [Concomitant]
     Dosage: 5 MG, UNK
  4. PREDNISONE TAB [Concomitant]
     Dosage: 1 MG, UNK
  5. AMITRIPTYLINE HCL [Concomitant]
     Dosage: 10 MG, EACH EVENING
  6. IMOVANE [Concomitant]
     Dosage: 15 MG, EACH EVENING
  7. CELEBREX [Concomitant]
     Dosage: 200 MG, DAILY (1/D)
  8. CEFUROXIME [Concomitant]
     Indication: PNEUMONIA
     Dosage: 500 MG, 2/D
     Route: 048
     Dates: start: 20081116, end: 20081120

REACTIONS (3)
  - CONFUSIONAL STATE [None]
  - PNEUMONIA [None]
  - PNEUMONIA ASPIRATION [None]
